FAERS Safety Report 5807917-1 (Version None)
Quarter: 2008Q3

REPORT INFORMATION
  Report Type: 
  Country: None (occurrence: None)
  Receive Date: 20080711
  Receipt Date: 20080630
  Transmission Date: 20090109
  Serious: Yes (Other)
  Sender: FDA-Public Use
  Company Number: US-ABBOTT-08P-163-0460720-00

PATIENT
  Sex: Female
  Weight: 71.732 kg

DRUGS (7)
  1. HUMIRA [Suspect]
     Indication: RHEUMATOID ARTHRITIS
     Route: 058
     Dates: start: 20020101
  2. IRON [Concomitant]
     Indication: ANAEMIA PROPHYLAXIS
     Route: 048
  3. PROBIOTICS [Concomitant]
     Indication: RHEUMATOID ARTHRITIS
     Route: 048
  4. FISH OIL [Concomitant]
     Indication: RHEUMATOID ARTHRITIS
     Route: 048
  5. CALCIUM W/MAGNESIUM [Concomitant]
     Indication: RHEUMATOID ARTHRITIS
     Route: 048
  6. ERGOCALCIFEROL [Concomitant]
     Indication: RHEUMATOID ARTHRITIS
     Route: 048
  7. MULTIVITAMIN GREEN FOOD JUICE [Concomitant]
     Indication: RHEUMATOID ARTHRITIS
     Route: 048

REACTIONS (6)
  - FALL [None]
  - GAIT DISTURBANCE [None]
  - HAEMOGLOBIN DECREASED [None]
  - JOINT INJURY [None]
  - MUSCULOSKELETAL DISORDER [None]
  - RHEUMATOID ARTHRITIS [None]
